FAERS Safety Report 4268863-0 (Version None)
Quarter: 2004Q1

REPORT INFORMATION
  Report Type: 
  Country: None (occurrence: None)
  Receive Date: 20040108
  Receipt Date: 20031230
  Transmission Date: 20041129
  Serious: Yes (Death)
  Sender: FDA-Public Use
  Company Number: 2003UW17317

PATIENT
  Age: 72 Year
  Sex: Female
  Weight: 49.4421 kg

DRUGS (20)
  1. IRESSA [Suspect]
     Indication: NON-SMALL CELL LUNG CANCER
     Dosage: 250 MG PO
     Route: 048
     Dates: start: 20031201
  2. WARFARIN SODIUM [Concomitant]
  3. DIGOXIN [Concomitant]
  4. TIKOSYN [Concomitant]
  5. NITROSTAT [Concomitant]
  6. MINITRAN [Concomitant]
  7. TOPROL-XL [Concomitant]
  8. NORVASC [Concomitant]
  9. ACTRACT [Concomitant]
  10. ESTRADERM [Concomitant]
  11. BEXTRA [Concomitant]
  12. MECLIZINE [Concomitant]
  13. XANAX [Concomitant]
  14. ATROVENT [Concomitant]
  15. DICYCLOMINE [Concomitant]
  16. LOMOTIL [Concomitant]
  17. KLOR-CON [Concomitant]
  18. ASPIRIN [Concomitant]
  19. MAG-OX [Concomitant]
  20. FOLIC ACID [Concomitant]

REACTIONS (1)
  - PNEUMONIA [None]
